FAERS Safety Report 8986329 (Version 1)
Quarter: 2012Q4

REPORT INFORMATION
  Report Type: 
  Country: US (occurrence: US)
  Receive Date: 20121226
  Receipt Date: 20121226
  Transmission Date: 20130627
  Serious: Yes (Hospitalization)
  Sender: FDA-Public Use
  Company Number: US-ELI_LILLY_AND_COMPANY-US201211007600

PATIENT
  Age: 51 Year
  Sex: Male
  Weight: 112.47 kg

DRUGS (1)
  1. EFFIENT [Suspect]
     Indication: STENT PLACEMENT
     Dosage: 10 g, qd
     Dates: start: 20111223

REACTIONS (2)
  - Pneumonia pneumococcal [Recovered/Resolved]
  - Sepsis [Unknown]
